FAERS Safety Report 16383874 (Version 1)
Quarter: 2019Q2

REPORT INFORMATION
  Report Type: Spontaneous
  Country: GB (occurrence: GB)
  Receive Date: 20190603
  Receipt Date: 20190603
  Transmission Date: 20190711
  Serious: Yes (Other)
  Sender: FDA-Public Use
  Company Number: GB-GLAXOSMITHKLINE-GB2019097695

PATIENT
  Age: 43 Year
  Sex: Male
  Weight: 86 kg

DRUGS (1)
  1. RANITIDINE. [Suspect]
     Active Substance: RANITIDINE
     Indication: ABDOMINAL PAIN UPPER
     Dosage: 300 MG, QD
     Route: 048
     Dates: start: 20190402, end: 20190419

REACTIONS (7)
  - Myositis [Recovered/Resolved]
  - Pyrexia [Recovered/Resolved]
  - Cough [Unknown]
  - Abnormal loss of weight [Unknown]
  - Oropharyngeal pain [Unknown]
  - Night sweats [Unknown]
  - Myalgia [Unknown]

NARRATIVE: CASE EVENT DATE: 20190419
